FAERS Safety Report 9457555 (Version 1)
Quarter: 2013Q3

REPORT INFORMATION
  Report Type: Spontaneous
  Country: US (occurrence: US)
  Receive Date: 20130814
  Receipt Date: 20130814
  Transmission Date: 20140515
  Serious: Yes (Other)
  Sender: FDA-Public Use
  Company Number: US-AMGEN-USASP2013056475

PATIENT
  Sex: Female

DRUGS (4)
  1. NEULASTA [Suspect]
     Indication: PRODUCT USED FOR UNKNOWN INDICATION
     Dosage: UNK
     Route: 065
  2. IFOSFAMIDE [Concomitant]
     Indication: HODGKIN^S DISEASE
     Dosage: UNK
     Route: 065
  3. CARBOPLATIN [Concomitant]
     Indication: HODGKIN^S DISEASE
     Dosage: UNK
     Route: 065
  4. ETOPOSIDE [Concomitant]
     Indication: HODGKIN^S DISEASE
     Dosage: UNK
     Route: 065

REACTIONS (1)
  - Anaphylactic reaction [Unknown]
